FAERS Safety Report 21501431 (Version 7)
Quarter: 2024Q4

REPORT INFORMATION
  Report Type: Spontaneous
  Country: AU (occurrence: AU)
  Receive Date: 20221025
  Receipt Date: 20241024
  Transmission Date: 20250115
  Serious: Yes (Hospitalization)
  Sender: JOHNSON AND JOHNSON
  Company Number: AU-JNJFOC-20221037525

PATIENT
  Age: 68 Year
  Sex: Female
  Weight: 64 kg

DRUGS (59)
  1. DARZALEX [Suspect]
     Active Substance: DARATUMUMAB
     Indication: Plasma cell myeloma
     Dosage: DOSE LAST STUDY DRUG ADMIN PRIOR AE IS 1.8 MG START DATE OF MOST RECENT DOSE OF STUDY DRUG PRIOR TO
     Route: 058
     Dates: start: 20220822
  2. CEVOSTAMAB [Suspect]
     Active Substance: CEVOSTAMAB
     Indication: Plasma cell myeloma
     Dosage: 160 MG (0.3 MG, ONCE),) DOSE LAST STUDY DRUG ADMIN PRIOR AE IS 160 MG START DATE OF MOST RECENT DOSE
     Route: 042
     Dates: start: 20220823
  3. DEXAMETHASONE [Suspect]
     Active Substance: DEXAMETHASONE
     Indication: Plasma cell myeloma
     Dosage: DOSE LAST STUDY DRUG ADMIN PRIOR AE IS 20 MG START DATE OF MOST RECENT DOSE OF STUDY DRUG PRIOR TO
     Route: 042
     Dates: start: 20220822
  4. TOCILIZUMAB [Suspect]
     Active Substance: TOCILIZUMAB
     Indication: Plasma cell myeloma
     Route: 065
     Dates: start: 20220823
  5. ALLOPURINOL [Concomitant]
     Active Substance: ALLOPURINOL
  6. CHOLECALCIFEROL [Concomitant]
     Active Substance: CHOLECALCIFEROL
  7. ENOXAPARIN [Concomitant]
     Active Substance: ENOXAPARIN
     Indication: Deep vein thrombosis
     Route: 058
     Dates: start: 20220423, end: 20220907
  8. MIDAZOLAM [Concomitant]
     Active Substance: MIDAZOLAM
     Indication: Biopsy bone marrow
     Route: 042
     Dates: start: 20220817, end: 20220817
  9. IOHEXOL [Concomitant]
     Active Substance: IOHEXOL
     Indication: Product used for unknown indication
     Route: 013
     Dates: start: 20220817, end: 20220817
  10. MAGNESIUM ASPARTATE [Concomitant]
     Active Substance: MAGNESIUM ASPARTATE
     Indication: Electrolyte substitution therapy
     Route: 048
     Dates: start: 2010
  11. OXYCODONE [Concomitant]
     Active Substance: OXYCODONE
     Indication: Arteriovenous fistula site haemorrhage
     Route: 048
     Dates: start: 20220818, end: 20220818
  12. OXYCODONE [Concomitant]
     Active Substance: OXYCODONE
     Indication: Thoracic operation
     Route: 048
     Dates: start: 20221017, end: 20221017
  13. OXYCODONE [Concomitant]
     Active Substance: OXYCODONE
     Indication: Back pain
     Route: 048
     Dates: start: 20221012
  14. PANTOPRAZOLE [Concomitant]
     Active Substance: PANTOPRAZOLE
     Indication: Product used for unknown indication
     Route: 048
     Dates: start: 20220824
  15. ACETAMINOPHEN [Concomitant]
     Active Substance: ACETAMINOPHEN
     Indication: Arteriovenous fistula site haemorrhage
     Route: 048
     Dates: start: 20220816, end: 20220819
  16. ACETAMINOPHEN [Concomitant]
     Active Substance: ACETAMINOPHEN
     Indication: Pain
     Route: 048
     Dates: start: 20220822, end: 20220822
  17. ACETAMINOPHEN [Concomitant]
     Active Substance: ACETAMINOPHEN
     Route: 048
     Dates: start: 20221012, end: 20221021
  18. ACETAMINOPHEN [Concomitant]
     Active Substance: ACETAMINOPHEN
     Route: 048
     Dates: start: 20221021
  19. RASBURICASE [Concomitant]
     Active Substance: RASBURICASE
     Indication: Product used for unknown indication
     Route: 042
     Dates: start: 20220823, end: 20220823
  20. BACTRIM [Concomitant]
     Active Substance: SULFAMETHOXAZOLE\TRIMETHOPRIM
     Indication: Pneumocystis jirovecii pneumonia
     Route: 048
     Dates: start: 20220823
  21. VALACYCLOVIR HYDROCHLORIDE [Concomitant]
     Active Substance: VALACYCLOVIR HYDROCHLORIDE
     Indication: Product used for unknown indication
     Route: 048
     Dates: start: 2021
  22. ZOMETA [Concomitant]
     Active Substance: ZOLEDRONIC ACID
     Indication: Hypercalcaemia
     Route: 042
     Dates: start: 2021
  23. NYSTATIN [Concomitant]
     Active Substance: NYSTATIN
     Indication: Oral candidiasis
     Route: 048
     Dates: start: 20220830, end: 20220906
  24. BETAMETHASONE [Concomitant]
     Active Substance: BETAMETHASONE
     Indication: Rash
     Route: 061
  25. LORATADINE [Concomitant]
     Active Substance: LORATADINE
     Indication: Rash
     Route: 048
     Dates: start: 20220908, end: 20220910
  26. METHYL SALICYLATE\PEPPERMINT OIL\SODIUM BICARBONATE\SODIUM CHLORIDE [Concomitant]
     Active Substance: METHYL SALICYLATE\PEPPERMINT OIL\SODIUM BICARBONATE\SODIUM CHLORIDE
     Indication: Product used for unknown indication
     Route: 048
     Dates: start: 20220825
  27. NALOXONE HYDROCHLORIDE\OXYCODONE HYDROCHLORIDE [Concomitant]
     Active Substance: NALOXONE HYDROCHLORIDE\OXYCODONE HYDROCHLORIDE
     Indication: Arthralgia
     Route: 048
     Dates: start: 20221010
  28. CEFAZOLIN [Concomitant]
     Active Substance: CEFAZOLIN
     Indication: Thoracic operation
     Route: 042
     Dates: start: 20221017, end: 20221017
  29. CEFAZOLIN [Concomitant]
     Active Substance: CEFAZOLIN
     Route: 042
     Dates: start: 20221017, end: 20221017
  30. CELECOXIB [Concomitant]
     Active Substance: CELECOXIB
     Indication: Back pain
     Route: 048
     Dates: start: 20221013, end: 20221016
  31. CELECOXIB [Concomitant]
     Active Substance: CELECOXIB
     Route: 048
     Dates: start: 20221018
  32. DEXAMETHASONE [Concomitant]
     Active Substance: DEXAMETHASONE
     Indication: Thoracic operation
     Route: 042
     Dates: start: 20221017, end: 20221017
  33. GADOBUTROL [Concomitant]
     Active Substance: GADOBUTROL
     Indication: Product used for unknown indication
     Route: 042
     Dates: start: 20221015, end: 20221015
  34. GADOBUTROL [Concomitant]
     Active Substance: GADOBUTROL
     Route: 042
     Dates: start: 20221016, end: 20221016
  35. LACTULOSE [Concomitant]
     Active Substance: LACTULOSE
     Indication: Constipation
     Route: 048
     Dates: start: 20221013, end: 20221018
  36. LACTULOSE [Concomitant]
     Active Substance: LACTULOSE
     Route: 048
     Dates: start: 20221018, end: 20221019
  37. LORAZEPAM [Concomitant]
     Active Substance: LORAZEPAM
     Indication: Product used for unknown indication
     Route: 048
     Dates: start: 20221015, end: 20221015
  38. LORAZEPAM [Concomitant]
     Active Substance: LORAZEPAM
     Route: 048
     Dates: start: 20221016, end: 20221016
  39. LORAZEPAM [Concomitant]
     Active Substance: LORAZEPAM
     Route: 048
     Dates: start: 20221019, end: 20221019
  40. POLYETHYLENE GLYCOLS [Concomitant]
     Active Substance: POLYETHYLENE GLYCOLS
     Indication: Constipation
     Dosage: DOSE 2 OTHER
     Route: 048
     Dates: start: 20221012, end: 20221015
  41. POLYETHYLENE GLYCOLS [Concomitant]
     Active Substance: POLYETHYLENE GLYCOLS
     Dosage: DOSE 2 OTHER
     Route: 048
     Dates: start: 20221018, end: 20221019
  42. ONDANSETRON [Concomitant]
     Active Substance: ONDANSETRON
     Indication: Thoracic operation
     Route: 042
     Dates: start: 20221017, end: 20221017
  43. ONDANSETRON [Concomitant]
     Active Substance: ONDANSETRON
     Route: 048
     Dates: start: 20221012, end: 20221012
  44. PARECOXIB [Concomitant]
     Active Substance: PARECOXIB
     Indication: Thoracic operation
     Route: 042
     Dates: start: 20221017, end: 20221017
  45. PREGABALIN [Concomitant]
     Active Substance: PREGABALIN
     Indication: Back pain
     Route: 048
     Dates: start: 20221013, end: 20221020
  46. PREGABALIN [Concomitant]
     Active Substance: PREGABALIN
     Route: 048
     Dates: start: 20221020
  47. METOCLOPRAMIDE [Concomitant]
     Active Substance: METOCLOPRAMIDE
     Indication: Nausea
     Route: 048
     Dates: start: 20221012, end: 20221012
  48. METOCLOPRAMIDE [Concomitant]
     Active Substance: METOCLOPRAMIDE
     Indication: Vomiting
  49. MORPHINE [Concomitant]
     Active Substance: MORPHINE
     Indication: Back pain
     Route: 042
     Dates: start: 20221012, end: 20221012
  50. MAGNESIUM SULFATE [Concomitant]
     Active Substance: MAGNESIUM SULFATE
     Indication: Thoracic operation
     Dosage: DOSE 10 OTHER
     Route: 042
     Dates: start: 20221017, end: 20221017
  51. METARAMINOL [Concomitant]
     Active Substance: METARAMINOL
     Indication: Thoracic operation
     Route: 042
     Dates: start: 20221017, end: 20221017
  52. PROPOFOL [Concomitant]
     Active Substance: PROPOFOL
     Indication: Thoracic operation
     Route: 042
     Dates: start: 20221017, end: 20221017
  53. REMIFENTANIL [Concomitant]
     Active Substance: REMIFENTANIL
     Indication: Thoracic operation
     Route: 042
     Dates: start: 20221017, end: 20221017
  54. SODIUM CHLORIDE [Concomitant]
     Active Substance: SODIUM CHLORIDE
     Indication: Thoracic operation
     Route: 042
     Dates: start: 20221016, end: 20221016
  55. SODIUM CHLORIDE [Concomitant]
     Active Substance: SODIUM CHLORIDE
     Route: 042
     Dates: start: 20221017, end: 20221017
  56. AMOXICILLIN\CLAVULANATE POTASSIUM [Concomitant]
     Active Substance: AMOXICILLIN\CLAVULANATE POTASSIUM
  57. DIPHENHYDRAMINE [Concomitant]
     Active Substance: DIPHENHYDRAMINE
  58. ACETAMINOPHEN [Concomitant]
     Active Substance: ACETAMINOPHEN
  59. POTASSIUM CHLORIDE [Concomitant]
     Active Substance: POTASSIUM CHLORIDE

REACTIONS (4)
  - Spinal cord compression [Unknown]
  - Plasma cell myeloma [Recovering/Resolving]
  - Cytokine release syndrome [Recovered/Resolved]
  - Rash erythematous [Recovered/Resolved]

NARRATIVE: CASE EVENT DATE: 20220823
